FAERS Safety Report 11419870 (Version 1)
Quarter: 2015Q3

REPORT INFORMATION
  Report Type: Spontaneous
  Country: US (occurrence: None)
  Receive Date: 20150825
  Receipt Date: 20150825
  Transmission Date: 20151125
  Serious: Yes (Life-Threatening, Hospitalization, Disabling)
  Sender: FDA-Public Use
  Company Number: None

PATIENT
  Age: 71 Year
  Sex: Female
  Weight: 83.92 kg

DRUGS (3)
  1. ALLOPURINOL 300MG COMMON BRANDS [Suspect]
     Active Substance: ALLOPURINOL
     Route: 048
     Dates: start: 20150204, end: 20150331
  2. ADVAIR HFA [Concomitant]
     Active Substance: FLUTICASONE PROPIONATE\SALMETEROL XINAFOATE
  3. LOVASTATIN. [Suspect]
     Active Substance: LOVASTATIN
     Route: 048
     Dates: start: 20150317, end: 20150331

REACTIONS (5)
  - Blindness [None]
  - Stevens-Johnson syndrome [None]
  - Quality of life decreased [None]
  - Alopecia [None]
  - Photosensitivity reaction [None]

NARRATIVE: CASE EVENT DATE: 20150331
